FAERS Safety Report 4354536-2 (Version None)
Quarter: 2004Q2

REPORT INFORMATION
  Report Type: 
  Country: None (occurrence: None)
  Receive Date: 20040506
  Receipt Date: 20040506
  Transmission Date: 20050107
  Serious: Yes (Other)
  Sender: FDA-Public Use
  Company Number: None

PATIENT
  Age: 70 Year
  Sex: Female
  Weight: 82.5547 kg

DRUGS (36)
  1. METFORMIN HCL [Suspect]
     Indication: DIABETES MELLITUS
     Dosage: 850 MG TID PO
     Route: 048
     Dates: start: 20020101
  2. HUMULIN 70/30 [Concomitant]
  3. GLUCOPHAGE [Concomitant]
  4. ZOCOR [Concomitant]
  5. ASPIRIN [Concomitant]
  6. BENZONATATE [Concomitant]
  7. METOCLOPRAMIDE [Concomitant]
  8. PROTONIX [Concomitant]
  9. ENALAPRIL MALEATE [Concomitant]
  10. LANOXIN [Concomitant]
  11. FUROSEMIDE [Concomitant]
  12. ATENOLOL [Concomitant]
  13. POTASSIUM CL [Concomitant]
  14. COLACE [Concomitant]
  15. DILTIAZEM HCL [Concomitant]
  16. HUMIBID LA [Concomitant]
  17. MIRALAX [Concomitant]
  18. DUCOATE SODIUM [Concomitant]
  19. COSENTHRERIOL [Concomitant]
  20. NITROGLYCERIN [Concomitant]
  21. HUMALOG [Concomitant]
  22. CALCIUM [Concomitant]
  23. ASA BABY [Concomitant]
  24. RANITIDINE [Concomitant]
  25. ATENOLOL [Concomitant]
  26. GLUCOTROL XL [Concomitant]
  27. AVANDIA [Concomitant]
  28. PROTONIX [Concomitant]
  29. CITRUCEL [Concomitant]
  30. GLUCOTROL [Concomitant]
  31. NPH INSULIN [Concomitant]
  32. NITROGLYCERIN [Concomitant]
  33. ZOCOR [Concomitant]
  34. METFORMIN HCL [Concomitant]
  35. CALCIUM [Concomitant]
  36. KCL TAB [Concomitant]

REACTIONS (4)
  - DIABETES MELLITUS INADEQUATE CONTROL [None]
  - DRUG EFFECT DECREASED [None]
  - PHARMACEUTICAL PRODUCT COMPLAINT [None]
  - STOOL ANALYSIS ABNORMAL [None]
